FAERS Safety Report 15687304 (Version 1)
Quarter: 2018Q4

REPORT INFORMATION
  Report Type: Spontaneous
  Country: NL (occurrence: NL)
  Receive Date: 20181205
  Receipt Date: 20181205
  Transmission Date: 20190205
  Serious: Yes (Hospitalization, Other)
  Sender: FDA-Public Use
  Company Number: NL-AUROBINDO-AUR-APL-2018-058279

PATIENT
  Age: 74 Year
  Sex: Male

DRUGS (3)
  1. SOTALOL. [Concomitant]
     Active Substance: SOTALOL
     Indication: PRODUCT USED FOR UNKNOWN INDICATION
     Dosage: 80 MILLIGRAM, DAILY
     Route: 065
  2. PRADAXA [Concomitant]
     Active Substance: DABIGATRAN ETEXILATE MESYLATE
     Indication: PRODUCT USED FOR UNKNOWN INDICATION
     Dosage: 150 MILLIGRAM, TWO TIMES A DAY
     Route: 065
  3. TAMSULOSIN [Suspect]
     Active Substance: TAMSULOSIN
     Indication: LOWER URINARY TRACT SYMPTOMS
     Dosage: MG DAILY
     Route: 048
     Dates: start: 20180810, end: 20180828

REACTIONS (2)
  - Palpitations [Recovered/Resolved]
  - Epilepsy [Recovered/Resolved]

NARRATIVE: CASE EVENT DATE: 20180828
